FAERS Safety Report 10204853 (Version 6)
Quarter: 2015Q1

REPORT INFORMATION
  Report Type: Spontaneous
  Country: US (occurrence: US)
  Receive Date: 20140529
  Receipt Date: 20150303
  Transmission Date: 20150720
  Serious: Yes (Hospitalization, Disabling, Other)
  Sender: FDA-Public Use
  Company Number: US-009507513-1405USA011491

PATIENT
  Sex: Female

DRUGS (7)
  1. ALENDRONATE SODIUM. [Suspect]
     Active Substance: ALENDRONATE SODIUM
     Indication: OSTEOPOROSIS
     Dosage: 70 MG, QW
     Route: 048
     Dates: start: 200802, end: 201002
  2. VITAMINS (UNSPECIFIED) [Concomitant]
     Active Substance: VITAMINS
     Dosage: UNK, QD
     Dates: start: 1999
  3. POTASSIUM (UNSPECIFIED) [Concomitant]
     Active Substance: POTASSIUM
     Dosage: 295 MG, QD
     Dates: start: 1999
  4. MAGNESIUM (UNSPECIFIED) [Concomitant]
     Active Substance: MAGNESIUM
     Dosage: 250 MG, QD
     Dates: start: 1999
  5. FOSAMAX [Suspect]
     Active Substance: ALENDRONATE SODIUM
     Indication: OSTEOPOROSIS
     Dosage: 70 MG, QW
     Route: 048
     Dates: start: 20030926, end: 200802
  6. CHOLECALCIFEROL [Concomitant]
     Active Substance: CHOLECALCIFEROL
     Dosage: 1000 MG, QD
     Dates: start: 1999
  7. CALCIUM (UNSPECIFIED) [Concomitant]
     Active Substance: CALCIUM
     Dosage: 1200 MG, BID
     Dates: start: 1999

REACTIONS (26)
  - Joint swelling [Unknown]
  - Urinary incontinence [Unknown]
  - Muscle strain [Unknown]
  - Muscle spasms [Unknown]
  - Nausea [Unknown]
  - Fall [Unknown]
  - Anaemia postoperative [Unknown]
  - Decreased appetite [Unknown]
  - Gastrooesophageal reflux disease [Unknown]
  - Osteoporosis [Not Recovered/Not Resolved]
  - Calcium deficiency [Unknown]
  - Coronary arterial stent insertion [Unknown]
  - Asthenia [Unknown]
  - Anxiety [Unknown]
  - Femur fracture [Not Recovered/Not Resolved]
  - Intramedullary rod insertion [Unknown]
  - Mastectomy [Unknown]
  - Tendon operation [Unknown]
  - Hysterectomy [Unknown]
  - Urinary tract infection [Unknown]
  - Femur fracture [Recovering/Resolving]
  - Rotator cuff syndrome [Unknown]
  - Dizziness [Unknown]
  - Femur fracture [Recovered/Resolved]
  - Rales [Unknown]
  - Back pain [Unknown]

NARRATIVE: CASE EVENT DATE: 1999
